FAERS Safety Report 4809016-4 (Version None)
Quarter: 2005Q4

REPORT INFORMATION
  Report Type: 
  Country: None (occurrence: None)
  Receive Date: 20051025
  Receipt Date: 20051004
  Transmission Date: 20060501
  Serious: Yes (Other)
  Sender: FDA-Public Use
  Company Number: US-BRISTOL-MYERS SQUIBB COMPANY-13145628

PATIENT
  Age: 30 Year
  Sex: Female

DRUGS (9)
  1. CYCLOPHOSPHAMIDE [Suspect]
     Indication: GLOMERULONEPHRITIS
     Route: 042
  2. WARFARIN [Concomitant]
  3. PREDNISONE [Concomitant]
  4. CAPTOPRIL [Concomitant]
  5. ALBUTEROL [Concomitant]
  6. TRIAMCINOLONE [Concomitant]
     Route: 055
  7. IRBESARTAN [Concomitant]
  8. METOLAZONE [Concomitant]
  9. FUROSEMIDE [Concomitant]

REACTIONS (1)
  - ABORTION SPONTANEOUS INCOMPLETE [None]
